FAERS Safety Report 13544096 (Version 1)
Quarter: 2017Q2

REPORT INFORMATION
  Report Type: Spontaneous
  Country: HR (occurrence: HR)
  Receive Date: 20170515
  Receipt Date: 20170515
  Transmission Date: 20170830
  Serious: Yes (Hospitalization, Other)
  Sender: FDA-Public Use
  Company Number: HR-BAYER-2017-089689

PATIENT
  Age: 81 Year
  Sex: Female

DRUGS (16)
  1. AMOXICILLIN W/CLAVULANIC ACID [Concomitant]
     Active Substance: AMOXICILLIN\CLAVULANIC ACID
     Dosage: UNK
     Dates: end: 201612
  2. TRIMETAZIDINE [Concomitant]
     Active Substance: TRIMETAZIDINE
     Dosage: 35 MG, BID
     Dates: start: 201612
  3. ATORVASTATIN [Concomitant]
     Active Substance: ATORVASTATIN
     Dosage: 80 MG, UNK
     Dates: end: 201612
  4. WARFARIN [Interacting]
     Active Substance: WARFARIN
     Indication: ATRIAL FIBRILLATION
     Dosage: UNK
     Dates: start: 201703
  5. MAREVAN [Concomitant]
     Active Substance: WARFARIN SODIUM
     Dosage: 1 AND 1/4 TABLETS A DAY
     Dates: start: 201702
  6. BRILIQUE [Concomitant]
     Active Substance: TICAGRELOR
     Dosage: 90 MG, BID
     Dates: start: 20161219
  7. ASPIRIN PROTECT 100 MG [Suspect]
     Active Substance: ASPIRIN
     Indication: MYOCARDIAL INFARCTION
     Dosage: 100 MG, QD
     Dates: start: 20161219
  8. ASPIRIN PROTECT 100 MG [Interacting]
     Active Substance: ASPIRIN
     Indication: STENT PLACEMENT
  9. BISOPROLOL [Concomitant]
     Active Substance: BISOPROLOL
     Dosage: UNK
  10. FUROSEMIDE. [Concomitant]
     Active Substance: FUROSEMIDE
     Dosage: 40 MG, BID
     Dates: start: 201702
  11. CLEXANE [Concomitant]
     Active Substance: ENOXAPARIN SODIUM
     Dosage: 80 MG, BID
     Dates: start: 20161219
  12. RAMIPRIL [RAMIPRIL] [Concomitant]
     Dosage: UNK
  13. EPLERENONE. [Concomitant]
     Active Substance: EPLERENONE
     Dosage: 25 MG, QD
     Dates: start: 201702
  14. PANTOPRAZOLE [Concomitant]
     Active Substance: PANTOPRAZOLE
     Dosage: 40 MG, UNK
     Dates: start: 201612
  15. OMEGA 3 FATTY ACIDS [Concomitant]
     Active Substance: OMEGA-3 FATTY ACIDS
     Dosage: UNK
     Dates: start: 201612
  16. FUROSEMIDE. [Concomitant]
     Active Substance: FUROSEMIDE
     Dosage: 20 MG, TIW
     Dates: start: 201612

REACTIONS (12)
  - Amnestic disorder [None]
  - Dyspnoea [None]
  - Headache [None]
  - Pupils unequal [None]
  - Labelled drug-drug interaction medication error [None]
  - Cerebral ischaemia [None]
  - Dizziness [None]
  - Fatigue [None]
  - Ataxia [None]
  - Epistaxis [None]
  - Asthenia [None]
  - Gait disturbance [None]

NARRATIVE: CASE EVENT DATE: 201612
